FAERS Safety Report 7612915-1 (Version None)
Quarter: 2011Q3

REPORT INFORMATION
  Report Type: 
  Country: None (occurrence: None)
  Receive Date: 20110712
  Receipt Date: 20110513
  Transmission Date: 20111222
  Serious: Yes (Other)
  Sender: FDA-Public Use
  Company Number: 029895

PATIENT
  Sex: Male

DRUGS (12)
  1. METOPOROLOL [Concomitant]
  2. RANEXA [Concomitant]
  3. LISINOPRIL [Concomitant]
  4. LEXAPRO [Concomitant]
  5. ASPIRIN [Concomitant]
  6. KEPPRA [Suspect]
     Indication: CONVULSION
     Dosage: 2000; 3000; 1500MG,1000 MG AT 7 AM AND 1000 MG 7 PM
     Dates: start: 20100101, end: 20110301
  7. KEPPRA [Suspect]
     Indication: CONVULSION
     Dosage: 2000; 3000; 1500MG,1000 MG AT 7 AM AND 1000 MG 7 PM
     Dates: start: 20110323, end: 20110101
  8. KEPPRA [Suspect]
     Indication: CONVULSION
     Dosage: 2000; 3000; 1500MG,1000 MG AT 7 AM AND 1000 MG 7 PM
     Dates: start: 20110101
  9. PLAVIX [Concomitant]
  10. LOVASTATIN [Concomitant]
  11. LORAZEPAM [Concomitant]
  12. ISOSORBIDE DINITRATE [Concomitant]

REACTIONS (1)
  - GRAND MAL CONVULSION [None]
